FAERS Safety Report 8919417 (Version 1)
Quarter: 2012Q4

REPORT INFORMATION
  Report Type: Spontaneous
  Country: FR (occurrence: None)
  Receive Date: 20121114
  Receipt Date: 20121114
  Transmission Date: 20130627
  Serious: Yes (Life-Threatening, Hospitalization, Other)
  Sender: FDA-Public Use
  Company Number: ADR-2012-02055

PATIENT
  Age: 54 Year
  Sex: Male

DRUGS (8)
  1. LIORESAL [Suspect]
     Dates: start: 201209
  2. BUMETAMIDE [Concomitant]
  3. AOTAL (ACAMPROSATE) [Concomitant]
  4. NEVIVOLOL (NEBIVOLOL HYDROCHLORIDE) [Concomitant]
  5. MOLSIDOMINE [Concomitant]
  6. DIURETICS (NO INGREDIENTS)/SUBSTANCES) [Concomitant]
  7. DAFALGAN CODEINE (CODEINE PHOSPHATE, PARACETAMOL) [Concomitant]
  8. HALDOL (HALOPERIDOL DECANOATE) [Concomitant]

REACTIONS (13)
  - Self-medication [None]
  - Drug administration error [None]
  - Confusional state [None]
  - Hallucination [None]
  - Somnolence [None]
  - Miosis [None]
  - Aggression [None]
  - Agitation [None]
  - Jaundice [None]
  - Hepatocellular injury [None]
  - Status epilepticus [None]
  - Encephalopathy [None]
  - Hypervigilance [None]
